FAERS Safety Report 6217094-3 (Version None)
Quarter: 2009Q2

REPORT INFORMATION
  Report Type: 
  Country: None (occurrence: None)
  Receive Date: 20090606
  Receipt Date: 20090526
  Transmission Date: 20091009
  Serious: Yes (Hospitalization, Other)
  Sender: FDA-Public Use
  Company Number: US-PFIZER INC-2005160038

PATIENT
  Sex: Female
  Weight: 88.9 kg

DRUGS (4)
  1. CELEBREX [Suspect]
     Dosage: UNK MG, UNK
     Route: 048
  2. TYLENOL (CAPLET) [Suspect]
  3. ACETYLSALICYLIC ACID [Suspect]
  4. BENADRYL [Suspect]
     Indication: HYPERSENSITIVITY
     Route: 065

REACTIONS (18)
  - ASTHENIA [None]
  - CONFUSIONAL STATE [None]
  - DIZZINESS [None]
  - DRUG HYPERSENSITIVITY [None]
  - FATIGUE [None]
  - FEELING ABNORMAL [None]
  - GLOSSODYNIA [None]
  - HYPERSENSITIVITY [None]
  - HYPERTENSION [None]
  - HYPOAESTHESIA [None]
  - MALAISE [None]
  - PAIN [None]
  - RASH [None]
  - SKIN BURNING SENSATION [None]
  - SPINAL OPERATION [None]
  - STRESS [None]
  - SWOLLEN TONGUE [None]
  - THROAT TIGHTNESS [None]
